FAERS Safety Report 5146829-6 (Version None)
Quarter: 2006Q4

REPORT INFORMATION
  Report Type: 
  Country: None (occurrence: None)
  Receive Date: 20061109
  Receipt Date: 20061101
  Transmission Date: 20070319
  Serious: Yes (Hospitalization)
  Sender: FDA-Public Use
  Company Number: JP-MERCK-0611USA01497

PATIENT
  Age: 81 Year
  Sex: Female

DRUGS (3)
  1. FOSAMAX [Suspect]
     Indication: OSTEOPOROSIS
     Route: 048
     Dates: start: 20060922, end: 20061007
  2. LOBU [Suspect]
     Route: 048
  3. SELBEX [Concomitant]
     Route: 048

REACTIONS (1)
  - EROSIVE DUODENITIS [None]
